FAERS Safety Report 22637575 (Version 1)
Quarter: 2023Q2

REPORT INFORMATION
  Report Type: Spontaneous
  Country: ES (occurrence: ES)
  Receive Date: 20230626
  Receipt Date: 20230626
  Transmission Date: 20230721
  Serious: Yes (Life-Threatening)
  Sender: FDA-Public Use
  Company Number: None

PATIENT
  Age: 38 Year
  Sex: Male

DRUGS (6)
  1. TACROLIMUS [Interacting]
     Active Substance: TACROLIMUS
     Indication: Immunosuppression
     Dosage: TACROLIMUS (2694A)
     Route: 065
     Dates: start: 20230315, end: 20230420
  2. ACYCLOVIR [Interacting]
     Active Substance: ACYCLOVIR
     Indication: Herpes virus infection
     Dosage: ACICLOVIR (201A)
     Route: 065
     Dates: start: 20230419, end: 20230423
  3. AZITHROMYCIN [Interacting]
     Active Substance: AZITHROMYCIN
     Indication: Bacterial infection
     Dosage: AZITROMICINA (7019A)
     Route: 065
     Dates: start: 20230418, end: 20230423
  4. OMEPRAZOLE [Interacting]
     Active Substance: OMEPRAZOLE
     Indication: Prophylaxis
     Dosage: OMEPRAZOL (2141A)
     Route: 065
     Dates: start: 20230422, end: 20230424
  5. ISAVUCONAZOLE [Interacting]
     Active Substance: ISAVUCONAZOLE
     Indication: Fungal infection
     Dosage: ISAVUCONAZOL SULFATO (8742SU)
     Route: 065
     Dates: start: 20230420, end: 20230422
  6. LEVOFLOXACIN [Concomitant]
     Active Substance: LEVOFLOXACIN
     Indication: Bacterial infection
     Dosage: LEVOFLOXACINO (2791A)
     Route: 065
     Dates: start: 20230421, end: 20230425

REACTIONS (4)
  - Chronic kidney disease [Recovered/Resolved]
  - Myoclonic dystonia [Recovered/Resolved]
  - Encephalopathy [Recovered/Resolved]
  - Drug interaction [Unknown]

NARRATIVE: CASE EVENT DATE: 20230423
